FAERS Safety Report 21920966 (Version 2)
Quarter: 2023Q1

REPORT INFORMATION
  Report Type: Spontaneous
  Country: BR (occurrence: None)
  Receive Date: 20230127
  Receipt Date: 20230316
  Transmission Date: 20230417
  Serious: Yes (Other)
  Sender: FDA-Public Use
  Company Number: 2023A020349

PATIENT
  Sex: Male

DRUGS (1)
  1. SYMBICORT [Suspect]
     Active Substance: BUDESONIDE\FORMOTEROL FUMARATE DIHYDRATE
     Dosage: 200/6 UG, 1 ASPIRATION AT NIGHT DURING CRISIS AS REQUIRED
     Route: 055

REACTIONS (4)
  - Asthmatic crisis [Unknown]
  - Dyspnoea [Not Recovered/Not Resolved]
  - Product administration error [Unknown]
  - Device delivery system issue [Unknown]
